FAERS Safety Report 5371484-X (Version None)
Quarter: 2007Q2

REPORT INFORMATION
  Report Type: 
  Country: None (occurrence: None)
  Receive Date: 20070626
  Receipt Date: 20070620
  Transmission Date: 20071010
  Serious: Yes (Congenital Anomaly)
  Sender: FDA-Public Use
  Company Number: US-ABBOTT-07P-163-0366105-00

PATIENT
  Sex: Female
  Weight: 2.6 kg

DRUGS (6)
  1. NORVIR [Suspect]
     Indication: DRUG EXPOSURE DURING PREGNANCY
  2. KALETRA [Suspect]
     Indication: DRUG EXPOSURE DURING PREGNANCY
  3. LAMIVUDINE + ZIDOVUDINE [Suspect]
     Indication: DRUG EXPOSURE DURING PREGNANCY
  4. SAQUINAVIR MESILATE [Suspect]
     Indication: DRUG EXPOSURE DURING PREGNANCY
  5. TENOFOVIR [Suspect]
     Indication: DRUG EXPOSURE DURING PREGNANCY
  6. FOLATE [Suspect]
     Indication: DRUG EXPOSURE DURING PREGNANCY

REACTIONS (1)
  - POLYDACTYLY [None]
